FAERS Safety Report 7149385-6 (Version None)
Quarter: 2010Q4

REPORT INFORMATION
  Report Type: 
  Country: None (occurrence: None)
  Receive Date: 20101209
  Receipt Date: 20101122
  Transmission Date: 20110411
  Serious: Yes (Other)
  Sender: FDA-Public Use
  Company Number: PT-AMGEN-PRTSP2010006218

PATIENT

DRUGS (10)
  1. ENBREL [Suspect]
     Indication: RHEUMATOID ARTHRITIS
     Dosage: 50 MG, WEEKLY
     Route: 058
     Dates: start: 20090604
  2. NAPROXEN [Concomitant]
     Dosage: UNK
     Dates: start: 20090910
  3. FOLICIL [Concomitant]
     Dosage: UNK
     Dates: start: 20100820
  4. PLAQUINOL [Concomitant]
     Dosage: UNK
     Dates: start: 20100820
  5. GLUCOSAMINE [Concomitant]
     Dosage: UNK
     Dates: start: 20091217
  6. FOSAVANCE [Concomitant]
     Dosage: UNK
     Dates: start: 20090604
  7. PRETERAX [Concomitant]
     Dosage: UNK
     Dates: start: 20090402
  8. LASIX [Concomitant]
     Dosage: UNK
     Dates: start: 20090402
  9. DAFLON [Concomitant]
     Dosage: UNK
     Dates: start: 20090115
  10. WARFARIN SODIUM [Concomitant]
     Dosage: UNK
     Dates: start: 20040101

REACTIONS (1)
  - DERMATITIS [None]
